FAERS Safety Report 21408354 (Version 1)
Quarter: 2022Q4

REPORT INFORMATION
  Report Type: Report from Study
  Country: US (occurrence: US)
  Receive Date: 20221004
  Receipt Date: 20221004
  Transmission Date: 20230113
  Serious: No
  Sender: FDA-Public Use
  Company Number: US-NOVARTISTESTPH-NVSC2022US223924

PATIENT
  Age: 31 Year
  Sex: Female
  Weight: 69.399 kg

DRUGS (1)
  1. COSENTYX [Suspect]
     Active Substance: SECUKINUMAB
     Indication: Product used for unknown indication
     Dosage: UNK UNK, BID
     Route: 058
     Dates: start: 20220104

REACTIONS (1)
  - Condition aggravated [Not Recovered/Not Resolved]

NARRATIVE: CASE EVENT DATE: 20220104
